FAERS Safety Report 9687854 (Version 2)
Quarter: 2014Q1

REPORT INFORMATION
  Report Type: Spontaneous
  Country: US (occurrence: US)
  Receive Date: 20131114
  Receipt Date: 20140103
  Transmission Date: 20141002
  Serious: Yes (Hospitalization, Other)
  Sender: FDA-Public Use
  Company Number: US-JNJFOC-20131103350

PATIENT
  Sex: Male
  Weight: 97.98 kg

DRUGS (8)
  1. HALDOL [Suspect]
     Indication: PSYCHOTIC DISORDER
     Route: 030
     Dates: start: 1984
  2. RISPERDAL [Suspect]
     Indication: PSYCHOTIC DISORDER
     Route: 048
     Dates: start: 2005
  3. INVEGA [Suspect]
     Indication: PSYCHOTIC DISORDER
     Route: 048
     Dates: end: 2007
  4. INVEGA [Suspect]
     Indication: PSYCHOTIC DISORDER
     Route: 048
     Dates: start: 2011
  5. INVEGA SUSTENNA [Suspect]
     Indication: PSYCHOTIC DISORDER
     Route: 030
     Dates: start: 2007, end: 2011
  6. STELAZINE [Concomitant]
     Route: 065
     Dates: start: 1986, end: 1997
  7. DIAMET [Concomitant]
     Route: 065
  8. LANEXAT [Concomitant]
     Route: 065

REACTIONS (5)
  - Investigation [Not Recovered/Not Resolved]
  - Adverse event [Not Recovered/Not Resolved]
  - Cerebrovascular accident [Not Recovered/Not Resolved]
  - Tardive dyskinesia [Not Recovered/Not Resolved]
  - Cerebral disorder [Unknown]
